FAERS Safety Report 21749019 (Version 3)
Quarter: 2023Q1

REPORT INFORMATION
  Report Type: Report from Study
  Country: US (occurrence: US)
  Receive Date: 20221219
  Receipt Date: 20230107
  Transmission Date: 20230417
  Serious: Yes (Death, Other)
  Sender: FDA-Public Use
  Company Number: US-TAKEDA-2022TUS097856

PATIENT
  Sex: Male

DRUGS (6)
  1. PONATINIB [Suspect]
     Active Substance: PONATINIB
     Indication: Chronic myeloid leukaemia
     Dosage: 45 MILLIGRAM, QD
     Route: 048
     Dates: start: 20221217, end: 20221219
  2. PONATINIB [Suspect]
     Active Substance: PONATINIB
     Indication: Blast crisis in myelogenous leukaemia
  3. LASIX [Concomitant]
     Active Substance: FUROSEMIDE
     Indication: Pleural effusion
     Dosage: 40 MILLIGRAM, Q8HR
     Route: 042
     Dates: start: 20221217, end: 20221219
  4. LASIX [Concomitant]
     Active Substance: FUROSEMIDE
     Indication: Ascites
  5. CEFEPIME [Concomitant]
     Active Substance: CEFEPIME HYDROCHLORIDE
     Indication: Febrile neutropenia
     Dosage: 2 GRAM, Q12H
     Route: 042
     Dates: start: 20221218, end: 20221219
  6. URSODIOL [Concomitant]
     Active Substance: URSODIOL
     Indication: Blood bilirubin increased
     Dosage: 300 MILLIGRAM, BID
     Route: 048
     Dates: start: 20221218, end: 20221219

REACTIONS (4)
  - Blast cell crisis [Fatal]
  - Hyperkalaemia [Fatal]
  - Tumour lysis syndrome [Fatal]
  - Cardiac failure [Fatal]
